FAERS Safety Report 18070571 (Version 4)
Quarter: 2020Q4

REPORT INFORMATION
  Report Type: Spontaneous
  Country: US (occurrence: US)
  Receive Date: 20200727
  Receipt Date: 20201230
  Transmission Date: 20210113
  Serious: Yes (Disabling)
  Sender: FDA-Public Use
  Company Number: US-SA-2020SA188675

PATIENT

DRUGS (2)
  1. AUBAGIO [Suspect]
     Active Substance: TERIFLUNOMIDE
     Indication: MULTIPLE SCLEROSIS
     Dosage: 14 MG, QD
     Route: 048
     Dates: start: 202006
  2. ASPIRIN [ACETYLSALICYLIC ACID] [Concomitant]
     Active Substance: ASPIRIN

REACTIONS (12)
  - Sunburn [Unknown]
  - Depression [Unknown]
  - Loss of personal independence in daily activities [Unknown]
  - Muscle spasms [Unknown]
  - Hyperhidrosis [Not Recovered/Not Resolved]
  - Illness [Unknown]
  - Intervertebral disc protrusion [Unknown]
  - Arthritis [Not Recovered/Not Resolved]
  - Back pain [Unknown]
  - Dry mouth [Unknown]
  - Arthralgia [Unknown]
  - Dyspepsia [Unknown]

NARRATIVE: CASE EVENT DATE: 202006
